FAERS Safety Report 15018653 (Version 2)
Quarter: 2018Q2

REPORT INFORMATION
  Report Type: Report from Study
  Country: CN (occurrence: CN)
  Receive Date: 20180616
  Receipt Date: 20180627
  Transmission Date: 20180711
  Serious: Yes (Hospitalization, Other)
  Sender: FDA-Public Use
  Company Number: CN-ROCHE-1860102

PATIENT
  Sex: Male
  Weight: 73 kg

DRUGS (1)
  1. AVASTIN [Suspect]
     Active Substance: BEVACIZUMAB
     Indication: COLORECTAL CANCER
     Route: 041
     Dates: start: 20160530

REACTIONS (7)
  - Diarrhoea [Unknown]
  - Discomfort [Unknown]
  - Abdominal pain [Unknown]
  - Nasopharyngitis [Recovering/Resolving]
  - Asthenia [Unknown]
  - Intestinal obstruction [Unknown]
  - Drug tolerance [Unknown]
